FAERS Safety Report 12995933 (Version 1)
Quarter: 2016Q4

REPORT INFORMATION
  Report Type: Spontaneous
  Country: FR (occurrence: FR)
  Receive Date: 20161202
  Receipt Date: 20161202
  Transmission Date: 20170207
  Serious: Yes (Hospitalization, Other)
  Sender: FDA-Public Use
  Company Number: FR-PFM-2016-01922

PATIENT
  Age: 66 Year
  Sex: Male

DRUGS (5)
  1. NAVELBINE [Suspect]
     Active Substance: VINORELBINE TARTRATE
     Dosage: 55 MG, SINGLE, C1D8
     Route: 041
     Dates: start: 20160916
  2. MACROGOL [Concomitant]
     Active Substance: POLYETHYLENE GLYCOLS
     Indication: CONSTIPATION
     Dosage: 10 G IF CONSTIPATION
     Route: 048
  3. CISPLATINE [Concomitant]
     Active Substance: CISPLATIN
     Indication: LUNG ADENOCARCINOMA STAGE II
     Dosage: 146 MG, SINGLE, C1D1
     Route: 042
     Dates: start: 20160909
  4. STILNOX [Concomitant]
     Active Substance: ZOLPIDEM TARTRATE
     Indication: PRODUCT USED FOR UNKNOWN INDICATION
     Dosage: 10 MG, QD (1/DAY)
     Route: 048
  5. NAVELBINE [Suspect]
     Active Substance: VINORELBINE TARTRATE
     Indication: LUNG ADENOCARCINOMA STAGE II
     Dosage: 55 MG, SINGLE, C1D1
     Route: 041
     Dates: start: 20150909

REACTIONS (1)
  - Acute coronary syndrome [Recovered/Resolved]

NARRATIVE: CASE EVENT DATE: 20160916
